FAERS Safety Report 8409846-6 (Version None)
Quarter: 2012Q2

REPORT INFORMATION
  Report Type: 
  Country: None (occurrence: None)
  Receive Date: 20120529
  Receipt Date: 20120515
  Transmission Date: 20120825
  Serious: Yes (Other)
  Sender: FDA-Public Use
  Company Number: 2012SP026103

PATIENT
  Sex: Female

DRUGS (2)
  1. PEG-INTRON [Suspect]
     Indication: HEPATITIS C
     Dates: start: 20120514
  2. RIBAVIRIN [Suspect]
     Indication: HEPATITIS C
     Dates: start: 20120514

REACTIONS (8)
  - FATIGUE [None]
  - PYREXIA [None]
  - CRYING [None]
  - ARTHRALGIA [None]
  - URINARY RETENTION [None]
  - THIRST [None]
  - DYSURIA [None]
  - INSOMNIA [None]
